FAERS Safety Report 5252250-2 (Version None)
Quarter: 2007Q1

REPORT INFORMATION
  Report Type: 
  Country: None (occurrence: None)
  Receive Date: 20070301
  Receipt Date: 20070221
  Transmission Date: 20070707
  Serious: Yes (Other)
  Sender: FDA-Public Use
  Company Number: US-JNJFOC-20070200529

PATIENT
  Sex: Male
  Weight: 108.86 kg

DRUGS (2)
  1. REMICADE [Suspect]
     Route: 042
  2. REMICADE [Suspect]
     Indication: RHEUMATOID ARTHRITIS
     Route: 042

REACTIONS (4)
  - AORTIC ANEURYSM [None]
  - HYPERTENSION [None]
  - INFUSION RELATED REACTION [None]
  - MUSCLE SPASMS [None]
